FAERS Safety Report 5798854-X (Version None)
Quarter: 2008Q3

REPORT INFORMATION
  Report Type: 
  Country: None (occurrence: None)
  Receive Date: 20080702
  Receipt Date: 20080624
  Transmission Date: 20090109
  Serious: Yes (Death, Other)
  Sender: FDA-Public Use
  Company Number: IN-BAXTER-2008BH006267

PATIENT
  Age: 71 Year
  Sex: Male
  Weight: 65 kg

DRUGS (2)
  1. DIANEAL [Suspect]
     Indication: PERITONEAL DIALYSIS
     Dosage: DOSE UNIT:UNKNOWN
     Route: 033
     Dates: start: 20080501, end: 20080606
  2. DIANEAL [Suspect]
     Dosage: DOSE UNIT:UNKNOWN
     Route: 033
     Dates: start: 20041201, end: 20080501

REACTIONS (2)
  - MYOCARDIAL INFARCTION [None]
  - PERITONEAL DIALYSIS COMPLICATION [None]
